FAERS Safety Report 9220067 (Version 1)
Quarter: 2013Q2

REPORT INFORMATION
  Report Type: Spontaneous
  Country: FR (occurrence: None)
  Receive Date: 20130405
  Receipt Date: 20130405
  Transmission Date: 20140414
  Serious: Yes (Hospitalization)
  Sender: FDA-Public Use
  Company Number: SYM-2013-02316

PATIENT
  Age: 71 Year
  Sex: Female

DRUGS (4)
  1. FLAGYL [Suspect]
     Route: 048
     Dates: start: 20121022, end: 20121023
  2. AUGMENTIN [Suspect]
     Dates: start: 20121015, end: 20121130
  3. ROCEPHINE [Suspect]
     Dates: start: 20121021, end: 20121021
  4. ALLOPURINOL (ALLOPURINOL) (ALLOPURINOL) [Concomitant]

REACTIONS (3)
  - Rash generalised [None]
  - Drug interaction [None]
  - Pneumonia aspiration [None]
